FAERS Safety Report 20638575 (Version 1)
Quarter: 2022Q1

REPORT INFORMATION
  Report Type: Report from Study
  Country: CA (occurrence: CA)
  Receive Date: 20220325
  Receipt Date: 20220325
  Transmission Date: 20220423
  Serious: Yes (Other)
  Sender: FDA-Public Use
  Company Number: CA-HLS-202200509

PATIENT
  Age: 77 Year
  Sex: Female

DRUGS (4)
  1. CLOZARIL [Suspect]
     Active Substance: CLOZAPINE
     Indication: Psychotic disorder
     Route: 048
     Dates: start: 20161128, end: 20220124
  2. CLOZARIL [Suspect]
     Active Substance: CLOZAPINE
     Indication: Parkinson^s disease
     Route: 048
     Dates: start: 20161128, end: 20220124
  3. CLOZARIL [Suspect]
     Active Substance: CLOZAPINE
     Indication: Psychotic disorder
     Dosage: 150 MG QHS
     Route: 048
     Dates: start: 20161129, end: 202201
  4. CLOZARIL [Suspect]
     Active Substance: CLOZAPINE
     Indication: Parkinson^s disease
     Dosage: 150 MG QHS
     Route: 048
     Dates: start: 20161129, end: 202201

REACTIONS (3)
  - Pneumonia aspiration [Unknown]
  - COVID-19 [Unknown]
  - Off label use [Unknown]
